FAERS Safety Report 20596932 (Version 4)
Quarter: 2022Q3

REPORT INFORMATION
  Report Type: Spontaneous
  Country: US (occurrence: US)
  Receive Date: 20220315
  Receipt Date: 20220805
  Transmission Date: 20221027
  Serious: No
  Sender: FDA-Public Use
  Company Number: US-PFIZER INC-202200270608

PATIENT
  Age: 39 Year
  Sex: Male
  Weight: 106.59 kg

DRUGS (1)
  1. SOMATROPIN [Suspect]
     Active Substance: SOMATROPIN
     Indication: Growth hormone deficiency
     Dosage: 0.4MG (ONCE EVERY FOUR DAYS TO THE ABDOMINAL AREA)
     Route: 058

REACTIONS (4)
  - Poor quality device used [Unknown]
  - Device defective [Unknown]
  - Device leakage [Unknown]
  - Device issue [Unknown]

NARRATIVE: CASE EVENT DATE: 20220214
